FAERS Safety Report 8067007-7 (Version None)
Quarter: 2012Q1

REPORT INFORMATION
  Report Type: 
  Country: None (occurrence: None)
  Receive Date: 20120124
  Receipt Date: 20120119
  Transmission Date: 20120608
  Serious: Yes (Hospitalization)
  Sender: FDA-Public Use
  Company Number: US-MERCK-1109USA01907

PATIENT
  Age: 70 Year
  Sex: Female

DRUGS (7)
  1. FOSAMAX [Suspect]
     Indication: ARTHRALGIA
     Route: 048
     Dates: start: 20040101, end: 20060101
  2. MEDROXYPROGESTERONE ACETATE [Concomitant]
     Indication: HORMONE REPLACEMENT THERAPY
     Route: 048
  3. PHYTOESTROGENS AND PROGESTERONE [Concomitant]
     Route: 065
  4. ESTRADIOL [Concomitant]
     Indication: HORMONE REPLACEMENT THERAPY
     Route: 048
  5. ESTROGENS (UNSPECIFIED) [Concomitant]
     Route: 065
     Dates: start: 19850101, end: 20090101
  6. FOSAMAX PLUS D [Suspect]
     Route: 048
  7. FOSAMAX [Suspect]
     Indication: OSTEOPOROSIS
     Route: 048
     Dates: start: 20040101, end: 20060101

REACTIONS (17)
  - HIP FRACTURE [None]
  - ANAEMIA [None]
  - FEMUR FRACTURE [None]
  - OFF LABEL USE [None]
  - FALL [None]
  - COMPRESSION FRACTURE [None]
  - ABDOMINAL DISCOMFORT [None]
  - ANTICOAGULANT THERAPY [None]
  - VARICELLA [None]
  - GASTROOESOPHAGEAL REFLUX DISEASE [None]
  - BREAST CANCER [None]
  - FIBROCYSTIC BREAST DISEASE [None]
  - TOOTH DISORDER [None]
  - PEPTIC ULCER [None]
  - INFUSION SITE ERYTHEMA [None]
  - COUGH [None]
  - ANXIETY [None]
